FAERS Safety Report 12226557 (Version 1)
Quarter: 2016Q1

REPORT INFORMATION
  Report Type: Report from Study
  Country: US (occurrence: US)
  Receive Date: 20160331
  Receipt Date: 20160331
  Transmission Date: 20160526
  Serious: Yes (Other)
  Sender: FDA-Public Use
  Company Number: US-GILEAD-2016-0205743

PATIENT
  Age: 53 Year
  Sex: Male

DRUGS (4)
  1. SOFOSBUVIR [Suspect]
     Active Substance: SOFOSBUVIR
     Indication: HEPATITIS C
     Dosage: 1 DF, QD
     Route: 048
     Dates: start: 20140622
  2. RIBASPHERE RIBAPAK [Suspect]
     Active Substance: RIBAVIRIN
     Indication: HEPATITIS C
     Dosage: UNK
     Route: 048
     Dates: start: 20140622
  3. RIBASPHERE RIBAPAK [Suspect]
     Active Substance: RIBAVIRIN
     Dosage: UNK
     Route: 048
     Dates: end: 20140930
  4. SOFOSBUVIR [Suspect]
     Active Substance: SOFOSBUVIR
     Dosage: 1 DF, QD
     Route: 048
     Dates: end: 20140930

REACTIONS (4)
  - Hepatitis C [Unknown]
  - Drug dispensing error [Unknown]
  - Drug ineffective [Unknown]
  - Drug dose omission [Unknown]
